FAERS Safety Report 5618157-3 (Version None)
Quarter: 2008Q1

REPORT INFORMATION
  Report Type: 
  Country: None (occurrence: None)
  Receive Date: 20080207
  Receipt Date: 20071107
  Transmission Date: 20080703
  Serious: Yes (Other)
  Sender: FDA-Public Use
  Company Number: A0688768A

PATIENT
  Age: 39 Year
  Sex: Female

DRUGS (3)
  1. PAROXETINE [Suspect]
     Indication: DEPRESSION
  2. TOPIRAMATE [Suspect]
     Indication: EPILEPSY
     Dosage: 400MG PER DAY
  3. CETIRIZINE HCL [Suspect]
     Indication: MULTIPLE ALLERGIES

REACTIONS (1)
  - ABORTION SPONTANEOUS [None]
